FAERS Safety Report 5482364-3 (Version None)
Quarter: 2007Q4

REPORT INFORMATION
  Report Type: 
  Country: None (occurrence: None)
  Receive Date: 20071011
  Receipt Date: 20071009
  Transmission Date: 20080405
  Serious: Yes (Other)
  Sender: FDA-Public Use
  Company Number: A0686689A

PATIENT
  Age: 63 Year
  Sex: Female

DRUGS (19)
  1. ADVAIR DISKUS 100/50 [Suspect]
     Indication: ASTHMA
     Dosage: 1PUFF PER DAY
     Route: 055
     Dates: start: 20041101, end: 20070201
  2. ADVAIR DISKUS 100/50 [Suspect]
     Dosage: 2PUFF TWICE PER DAY
     Route: 055
     Dates: start: 20070201
  3. PLAVIX [Concomitant]
  4. UNSPECIFIED MEDICATION [Concomitant]
  5. ASPIRIN [Concomitant]
  6. PROTONIX [Concomitant]
  7. PREMARIN [Concomitant]
  8. DIOVAN [Concomitant]
  9. ADVICOR [Concomitant]
  10. SINGULAIR [Concomitant]
  11. AMITRIPTYLINE HCL [Concomitant]
  12. CRANBERRY TABLETS [Concomitant]
  13. FISH OIL [Concomitant]
  14. VITAMIN E [Concomitant]
  15. GLUCOSAMINE + CHONDROITIN [Concomitant]
  16. CALCIUM PLUS D [Concomitant]
  17. BYETTA [Concomitant]
  18. PROAIR HFA [Concomitant]
  19. EPIPEN [Concomitant]

REACTIONS (5)
  - HYPERSENSITIVITY [None]
  - PLEURAL EFFUSION [None]
  - RECTOCELE [None]
  - RESPIRATION ABNORMAL [None]
  - RESPIRATORY DISTRESS [None]
